FAERS Safety Report 22053072 (Version 7)
Quarter: 2024Q3

REPORT INFORMATION
  Report Type: Report from Study
  Country: US (occurrence: US)
  Receive Date: 20230302
  Receipt Date: 20240926
  Transmission Date: 20241016
  Serious: Yes (Other)
  Sender: GLAXOSMITHKLINE
  Company Number: US-GLAXOSMITHKLINE-US2023AMR029968

PATIENT

DRUGS (1)
  1. NIRAPARIB [Suspect]
     Active Substance: NIRAPARIB
     Indication: Malignant peritoneal neoplasm
     Dosage: 200 MG, QD
     Route: 048
     Dates: start: 202209, end: 20230703

REACTIONS (15)
  - Precancerous condition [Recovered/Resolved]
  - Recurrent cancer [Unknown]
  - Vomiting projectile [Unknown]
  - Nausea [Not Recovered/Not Resolved]
  - Peripheral swelling [Recovering/Resolving]
  - Osteoarthritis [Not Recovered/Not Resolved]
  - Abdominal pain [Recovering/Resolving]
  - Abdominal distension [Not Recovered/Not Resolved]
  - Blood pressure increased [Recovering/Resolving]
  - Fatigue [Recovering/Resolving]
  - Madarosis [Not Recovered/Not Resolved]
  - Renal disorder [Not Recovered/Not Resolved]
  - Carbohydrate antigen 125 increased [Not Recovered/Not Resolved]
  - Drug ineffective [Unknown]
  - Product dose omission issue [Unknown]
